FAERS Safety Report 7755528-3 (Version None)
Quarter: 2011Q3

REPORT INFORMATION
  Report Type: 
  Country: None (occurrence: None)
  Receive Date: 20110914
  Receipt Date: 20110830
  Transmission Date: 20111222
  Serious: Yes (Hospitalization)
  Sender: FDA-Public Use
  Company Number: DSM-2011-00803

PATIENT
  Age: 49 Year
  Sex: Male

DRUGS (20)
  1. CEFTROAXONE MYLAN (CEFTRIAXONE) (CEFTRIAXONE) [Suspect]
     Indication: PRODUCT USED FOR UNKNOWN INDICATION
     Dosage: 1 GM, INTRAVENOUS (NOT OTHERWISE SPECIFIED)
     Route: 042
     Dates: start: 20110626, end: 20110630
  2. PHILOROGLUCINOL ARROW (PHLOROGLUCINOL) (PHLOROGLUCIN) [Suspect]
     Indication: PRODUCT USED FOR UNKNOWN INDICATION
     Dosage: 480 MG (80 MG, 1 IN 4 HR), ORAL
     Route: 048
     Dates: start: 20110627, end: 20110629
  3. LOVENOX (ENOXAPARIN SODIUM) (ENOXAPARIN SODIUM) [Suspect]
     Indication: PRODUCT USED FOR UNKNOWN INDICATION
     Dosage: 4000 IU, SUBCUTANEOUS
     Route: 058
     Dates: start: 20110624, end: 20110630
  4. ACETYL SALICYLIC ACID USP BAT [Suspect]
     Indication: PRODUCT USED FOR UNKNOWN INDICATION
     Dosage: 75 MG (75 MG, 1 IN 1 D) ORAL
     Route: 048
     Dates: start: 20110625, end: 20110705
  5. ACETYL SALICYLIC ACID USP BAT [Suspect]
     Indication: PRODUCT USED FOR UNKNOWN INDICATION
     Dosage: 75 MG (75 MG, 1 IN 1 D) ORAL
     Route: 048
     Dates: end: 20110621
  6. VITAMIN B1 B6 BAYER (THIAMINE PYRIDOXINE) (TABLET) (THIAMINE, PRYIDOXI [Suspect]
     Indication: PRODUCT USED FOR UNKNOWN INDICATION
     Dosage: 6 DOSAGE FORMS (2 DOSAGE FORMS, 3 IN 1 D),ORAL
     Route: 048
     Dates: start: 20110628, end: 20110712
  7. DOLIPRAN (PARACETAMOL) (PARACETAMOL) [Suspect]
     Indication: PRODUCT USED FOR UNKNOWN INDICATION
     Dosage: 4 GM (1 GM, 4 IN 1 D), ORAL
     Route: 048
     Dates: end: 20110621
  8. OLMESARTAN MEDOXOMIL [Suspect]
     Indication: PRODUCT USED FOR UNKNOWN INDICATION
     Dosage: ORAL; 20 MG (20 MG, 1 IN 1 D),ORAL
     Route: 048
     Dates: start: 20110625, end: 20110712
  9. OLMESARTAN MEDOXOMIL [Suspect]
     Indication: PRODUCT USED FOR UNKNOWN INDICATION
     Dosage: ORAL; 20 MG (20 MG, 1 IN 1 D),ORAL
     Route: 048
     Dates: end: 20110621
  10. EUPANTOL(PANTOPRAZOLE) (INJECTION) (PANTOPRAZOLE) [Suspect]
     Indication: PRODUCT USED FOR UNKNOWN INDICATION
     Dosage: 40 MG, INTRAVENOUS (NOT OTHERWISE SPECIFIED) 40 MG, INTRAVENOUS (NOT OTHERWISE SPECIFIED)
     Route: 042
     Dates: start: 20110625, end: 20110628
  11. EUPANTOL(PANTOPRAZOLE) (INJECTION) (PANTOPRAZOLE) [Suspect]
     Indication: PRODUCT USED FOR UNKNOWN INDICATION
     Dosage: 40 MG, INTRAVENOUS (NOT OTHERWISE SPECIFIED) 40 MG, INTRAVENOUS (NOT OTHERWISE SPECIFIED)
     Route: 042
     Dates: start: 20110623, end: 20110624
  12. INEXIUM (ESOMEPRAZOLE MAGNESIUM) (TABLET) (ESOMEPRAZOLE MAGNESIUM) [Suspect]
     Indication: PRODUCT USED FOR UNKNOWN INDICATION
     Dosage: 40 MG (40 MG, 1 IN 1 D),ORAL
     Route: 048
     Dates: start: 20110629, end: 20110702
  13. BISOCE (BISOPROLOL FUMARATE) (BISOPROLOL FUMARATE) [Suspect]
     Indication: PRODUCT USED FOR UNKNOWN INDICATION
     Dosage: 10 MG (10 MG, 1 IN 1 D),ORAL
     Route: 048
     Dates: start: 20110625, end: 20110712
  14. BISOCE (BISOPROLOL FUMARATE) (BISOPROLOL FUMARATE) [Suspect]
     Indication: PRODUCT USED FOR UNKNOWN INDICATION
     Dosage: 10 MG (10 MG, 1 IN 1 D),ORAL
     Route: 048
     Dates: end: 20110621
  15. VITABACT (PICLOXYDINE DIHYDROCHLORIDE) (EYE DROPS) (PICLOXYDINE DIHYDR [Suspect]
     Indication: PRODUCT USED FOR UNKNOWN INDICATION
     Dosage: 1 GTT, 1 DROP IN EACH EYE EVERY 4 HOURS), OPHTHALMIC
     Route: 047
     Dates: start: 20110627, end: 20110710
  16. SALAZOPYRINE (SULFASALAZINE) (PROLONGED-RELEASE TABLET) (SULFASAZINE) [Suspect]
     Indication: BURSITIS
     Dosage: 2000 MG (1000 MG, 2 IN 1 D), ORAL
     Route: 048
     Dates: end: 20110601
  17. ZOLPIDEM [Suspect]
     Indication: PRODUCT USED FOR UNKNOWN INDICATION
     Dosage: 10 MG
     Dates: start: 20110628, end: 20110701
  18. KETOPROFEN [Suspect]
     Indication: PRODUCT USED FOR UNKNOWN INDICATION
     Dosage: ORAL
     Route: 048
     Dates: end: 20110621
  19. CONTRAMAL (TRAMADOL HYDROCHLORIDE) (TRAMADOL HYDROCHLORIDE) [Suspect]
     Indication: PAIN
     Dosage: 1 DOSAGE FORMS, IF NEEDED
     Dates: start: 20110623, end: 20110624
  20. LANZOR (LANSOPRAZOLE) (LANSOPRAZOLE) [Suspect]
     Indication: PRODUCT USED FOR UNKNOWN INDICATION
     Dosage: 15 MG
     Dates: end: 20110621

REACTIONS (10)
  - DRUG RASH WITH EOSINOPHILIA AND SYSTEMIC SYMPTOMS [None]
  - ASPARTATE AMINOTRANSFERASE INCREASED [None]
  - BLOOD ALKALINE PHOSPHATASE INCREASED [None]
  - ALANINE AMINOTRANSFERASE INCREASED [None]
  - RASH MACULO-PAPULAR [None]
  - DERMATITIS EXFOLIATIVE [None]
  - FEBRILE NEUTROPENIA [None]
  - ROSEOLOVIRUS TEST POSITIVE [None]
  - GAMMA-GLUTAMYLTRANSFERASE INCREASED [None]
  - CYTOLYTIC HEPATITIS [None]
